FAERS Safety Report 14499107 (Version 1)
Quarter: 2018Q1

REPORT INFORMATION
  Report Type: Spontaneous
  Country: US (occurrence: US)
  Receive Date: 20180207
  Receipt Date: 20180207
  Transmission Date: 20180509
  Serious: No
  Sender: FDA-Public Use
  Company Number: US-JAZZ-2017-US-000856

PATIENT
  Age: 49 Year
  Sex: Female

DRUGS (22)
  1. PRIALT [Suspect]
     Active Substance: ZICONOTIDE ACETATE
     Dosage: 0.222 ?G, QH (13% DECREASE IN DAILY DOSE)
     Route: 037
     Dates: start: 20120605
  2. BACLOFEN. [Suspect]
     Active Substance: BACLOFEN
     Dosage: 0.584 ?G, QH
     Route: 037
     Dates: start: 20130207
  3. FENTANYL. [Suspect]
     Active Substance: FENTANYL
     Indication: PRODUCT USED FOR UNKNOWN INDICATION
     Dosage: 91.75 ?G, QH
     Route: 037
     Dates: start: 20120118
  4. PRIALT [Suspect]
     Active Substance: ZICONOTIDE ACETATE
     Dosage: 0.046 ?G, QH
     Route: 037
     Dates: start: 20130304
  5. BACLOFEN. [Suspect]
     Active Substance: BACLOFEN
     Dosage: 3.833 ?G, QH
     Route: 037
     Dates: start: 20120524
  6. BACLOFEN. [Suspect]
     Active Substance: BACLOFEN
     Dosage: 3.333 ?G, QH (13% DECREASE IN DAILY DOSE)
     Route: 037
     Dates: start: 20120605
  7. FENTANYL. [Suspect]
     Active Substance: FENTANYL
     Dosage: 83.32 ?G, QH (13% DECREASE IN DAILY DOSE)
     Route: 037
     Dates: start: 20120605
  8. FENTANYL. [Suspect]
     Active Substance: FENTANYL
     Dosage: 12.51 ?G, QH
     Route: 037
     Dates: start: 20130130
  9. FENTANYL. [Suspect]
     Active Substance: FENTANYL
     Dosage: 16.663 ?G, QH
     Route: 037
     Dates: start: 20130222
  10. FENTANYL. [Suspect]
     Active Substance: FENTANYL
     Dosage: 18.758 ?G, QH
     Route: 037
     Dates: start: 20130304
  11. PRIALT [Suspect]
     Active Substance: ZICONOTIDE ACETATE
     Dosage: 0.004 ?G, QH
     Route: 037
     Dates: start: 20130130
  12. FENTANYL. [Suspect]
     Active Substance: FENTANYL
     Dosage: 95.83 ?G, QH
     Route: 037
     Dates: start: 20120507
  13. PRIALT [Suspect]
     Active Substance: ZICONOTIDE ACETATE
     Indication: PRODUCT USED FOR UNKNOWN INDICATION
     Dosage: 0.245 ?G, QH
     Route: 037
     Dates: start: 20120418
  14. PRIALT [Suspect]
     Active Substance: ZICONOTIDE ACETATE
     Dosage: 0.256 ?G, QH
     Route: 037
     Dates: start: 20120524
  15. BACLOFEN. [Suspect]
     Active Substance: BACLOFEN
     Dosage: 3.833 ?G, QH
     Route: 037
     Dates: start: 20120507
  16. PRIALT [Suspect]
     Active Substance: ZICONOTIDE ACETATE
     Dosage: 0.256 ?G, QH
     Route: 037
     Dates: start: 20120507
  17. PRIALT [Suspect]
     Active Substance: ZICONOTIDE ACETATE
     Dosage: 0.005 ?G, QH
     Route: 037
     Dates: start: 20130207
  18. PRIALT [Suspect]
     Active Substance: ZICONOTIDE ACETATE
     Dosage: 0.042 ?G, QH
     Route: 037
     Dates: start: 20130222
  19. BACLOFEN. [Suspect]
     Active Substance: BACLOFEN
     Indication: PRODUCT USED FOR UNKNOWN INDICATION
     Dosage: 3.67 ?G, QH
     Route: 037
     Dates: start: 20120418
  20. FENTANYL. [Suspect]
     Active Substance: FENTANYL
     Dosage: 95.83 ?G, QH
     Route: 037
     Dates: start: 20120524
  21. BACLOFEN. [Suspect]
     Active Substance: BACLOFEN
     Dosage: 0.5 ?G, QH
     Route: 037
     Dates: start: 20130130
  22. FENTANYL. [Suspect]
     Active Substance: FENTANYL
     Dosage: 14.6 ?G, QH
     Route: 037
     Dates: start: 20130207

REACTIONS (3)
  - Memory impairment [Recovered/Resolved]
  - Device issue [Recovered/Resolved]
  - Catheter site swelling [Recovered/Resolved]

NARRATIVE: CASE EVENT DATE: 20120524
